FAERS Safety Report 25957770 (Version 1)
Quarter: 2025Q4

REPORT INFORMATION
  Report Type: Spontaneous
  Country: EU (occurrence: EU)
  Receive Date: 20251024
  Receipt Date: 20251024
  Transmission Date: 20260118
  Serious: Yes (Hospitalization, Other)
  Sender: AMGEN
  Company Number: EU-AMGEN-BELSP2025205795

PATIENT

DRUGS (1)
  1. ADALIMUMAB [Suspect]
     Active Substance: ADALIMUMAB
     Indication: Colitis ulcerative
     Dosage: UNK
     Route: 065

REACTIONS (19)
  - Colitis ulcerative [Unknown]
  - Cholangitis sclerosing [Unknown]
  - Uveitis [Unknown]
  - Clostridium difficile infection [Unknown]
  - Anal abscess [Unknown]
  - Basal cell carcinoma [Unknown]
  - Cholangiocarcinoma [Unknown]
  - Pouchitis [Unknown]
  - Erythema nodosum [Unknown]
  - Psoriasis [Unknown]
  - Hidradenitis [Unknown]
  - Spondyloarthropathy [Unknown]
  - Arthralgia [Unknown]
  - Herpes zoster [Unknown]
  - Candida infection [Unknown]
  - COVID-19 [Unknown]
  - Hepatic enzyme increased [Unknown]
  - Urticaria [Unknown]
  - Treatment failure [Unknown]
